FAERS Safety Report 8549439-3 (Version None)
Quarter: 2012Q3

REPORT INFORMATION
  Report Type: 
  Country: None (occurrence: None)
  Receive Date: 20120730
  Receipt Date: 20120716
  Transmission Date: 20120928
  Serious: Yes (Hospitalization)
  Sender: FDA-Public Use
  Company Number: TW-MYLANLABS-2012S1014592

PATIENT
  Age: 60 Year
  Sex: Female

DRUGS (4)
  1. VALPROATE SODIUM [Suspect]
     Indication: BIPOLAR I DISORDER
     Dosage: 500 MG/DAY
     Route: 065
  2. QUETIAPINE [Interacting]
     Dosage: 400 MG/DAY
     Route: 065
  3. QUETIAPINE [Interacting]
     Indication: BIPOLAR I DISORDER
     Dosage: 200 MG/DAY
     Route: 065
  4. LITHIUM CARBONATE [Concomitant]
     Indication: BIPOLAR I DISORDER
     Dosage: 300 MG/DAY
     Route: 065

REACTIONS (2)
  - DRUG INTERACTION [None]
  - NEUTROPENIA [None]
